FAERS Safety Report 6908385-9 (Version None)
Quarter: 2010Q3

REPORT INFORMATION
  Report Type: 
  Country: None (occurrence: None)
  Receive Date: 20100805
  Receipt Date: 20100726
  Transmission Date: 20110219
  Serious: Yes (Hospitalization)
  Sender: FDA-Public Use
  Company Number: US-MPIJNJ-2010-02808

PATIENT
  Sex: Male

DRUGS (4)
  1. VELCADE [Suspect]
     Indication: PROPHYLAXIS AGAINST TRANSPLANT REJECTION
     Dosage: 1.3 MG/M2, UNK
     Route: 042
     Dates: start: 20081027
  2. VELCADE [Suspect]
     Dosage: 1 MG/M2, UNK
     Route: 042
  3. VELCADE [Suspect]
     Dosage: 0.7 MG/M2, UNK
     Route: 042
     Dates: end: 20090401
  4. DOXORUBICIN HCL [Suspect]
     Indication: PROPHYLAXIS AGAINST TRANSPLANT REJECTION

REACTIONS (4)
  - CYTOMEGALOVIRUS COLITIS [None]
  - DIARRHOEA [None]
  - NEUROPATHY PERIPHERAL [None]
  - THROMBOCYTOPENIA [None]
